FAERS Safety Report 6936129-3 (Version None)
Quarter: 2010Q3

REPORT INFORMATION
  Report Type: 
  Country: None (occurrence: None)
  Receive Date: 20100817
  Receipt Date: 20100802
  Transmission Date: 20110219
  Serious: Yes (Death, Other)
  Sender: FDA-Public Use
  Company Number: 2010AP001635

PATIENT
  Age: 36 Year
  Sex: Male

DRUGS (4)
  1. CITALOPRAM HYDROBROMIDE [Suspect]
  2. METHADONE [Suspect]
  3. ALPRAZOLAM [Suspect]
  4. OLANZAPINE [Suspect]

REACTIONS (6)
  - ARTERIOSCLEROSIS CORONARY ARTERY [None]
  - DISORIENTATION [None]
  - DRUG INTERACTION [None]
  - DYSPNOEA [None]
  - SEROTONIN SYNDROME [None]
  - SOMNOLENCE [None]
